FAERS Safety Report 7952467-X (Version None)
Quarter: 2011Q4

REPORT INFORMATION
  Report Type: 
  Country: None (occurrence: None)
  Receive Date: 20111201
  Receipt Date: 20111125
  Transmission Date: 20120403
  Serious: Yes (Hospitalization)
  Sender: FDA-Public Use
  Company Number: BG-ASTRAZENECA-2011SE71874

PATIENT
  Age: 72 Year
  Sex: Male
  Weight: 85 kg

DRUGS (4)
  1. NORVASC [Concomitant]
     Dates: start: 20111001
  2. CRESTOR [Suspect]
     Indication: DYSLIPIDAEMIA
     Route: 048
     Dates: start: 20111001, end: 20111109
  3. TROMBEX [Concomitant]
     Dates: start: 20111001, end: 20111109
  4. PLAVIX [Concomitant]
     Dates: start: 20111001

REACTIONS (1)
  - MELAENA [None]
